FAERS Safety Report 9173958 (Version 1)
Quarter: 2013Q1

REPORT INFORMATION
  Report Type: Spontaneous
  Country: US (occurrence: None)
  Receive Date: 20130314
  Receipt Date: 20130314
  Transmission Date: 20140127
  Serious: Yes (Hospitalization, Disabling, Other)
  Sender: FDA-Public Use
  Company Number: 2013HINLIT0035

PATIENT
  Age: 32 Year
  Sex: Female

DRUGS (5)
  1. LAMIVUDINE + ZIDOVUDINE [Suspect]
     Indication: ANTIRETROVIRAL THERAPY
  2. LAMIVUDINE + ZIDOVUDINE [Suspect]
  3. LAMIVUDINE + ZIDOVUDINE [Suspect]
  4. RITONAVIR [Suspect]
     Indication: ANTIRETROVIRAL THERAPY
  5. ATAZANAVIR [Suspect]
     Indication: ANTIRETROVIRAL THERAPY

REACTIONS (7)
  - Epidural lipomatosis [None]
  - Back pain [None]
  - Pain in extremity [None]
  - Maternal exposure during pregnancy [None]
  - Respiratory depression [None]
  - Wheelchair user [None]
  - Myalgia [None]
